FAERS Safety Report 8487180-6 (Version None)
Quarter: 2012Q3

REPORT INFORMATION
  Report Type: 
  Country: None (occurrence: None)
  Receive Date: 20120704
  Receipt Date: 20120702
  Transmission Date: 20120928
  Serious: Yes (Life-Threatening, Hospitalization)
  Sender: FDA-Public Use
  Company Number: US-ROCHE-1069102

PATIENT
  Sex: Male
  Weight: 79.3 kg

DRUGS (3)
  1. PEGASYS [Suspect]
     Indication: HEPATITIS C
     Dosage: LAST DOSE PRIOR TO AE: 20/JAN/2012
     Dates: start: 20110722, end: 20120125
  2. BLINDED ALISPORIVIR [Suspect]
     Indication: HEPATITIS C
     Dosage: LAST DOSE PRIOR TO AE:24/JAN/2012
     Route: 048
     Dates: start: 20110722, end: 20120125
  3. COPEGUS [Suspect]
     Indication: HEPATITIS C
     Dosage: LAST DOSE PRIOR TO AE: 12/JAN/2012
     Dates: start: 20110722, end: 20120125

REACTIONS (1)
  - RESPIRATORY DISTRESS [None]
